FAERS Safety Report 12744480 (Version 4)
Quarter: 2018Q3

REPORT INFORMATION
  Report Type: Spontaneous
  Country: US (occurrence: US)
  Receive Date: 20160914
  Receipt Date: 20180912
  Transmission Date: 20181010
  Serious: No
  Sender: FDA-Public Use
  Company Number: US-JAZZ-2016-US-009327

PATIENT
  Sex: Male

DRUGS (16)
  1. XYREM [Suspect]
     Active Substance: SODIUM OXYBATE
     Dosage: 2.25 G, BID
     Route: 048
     Dates: start: 200804, end: 200805
  2. ABILIFY [Concomitant]
     Active Substance: ARIPIPRAZOLE
  3. FERROUS SULFATE. [Concomitant]
     Active Substance: FERROUS SULFATE
  4. XYREM [Suspect]
     Active Substance: SODIUM OXYBATE
     Dosage: 4.5 G, BID
     Route: 048
     Dates: start: 2008
  5. BENICAR HCT [Concomitant]
     Active Substance: HYDROCHLOROTHIAZIDE\OLMESARTAN MEDOXOMIL
  6. XYREM [Suspect]
     Active Substance: SODIUM OXYBATE
     Dosage: DOSE ADJUSTMENT
     Route: 048
     Dates: start: 2008, end: 2008
  7. QUETIAPINE FUMARATE. [Concomitant]
     Active Substance: QUETIAPINE FUMARATE
  8. XYREM [Suspect]
     Active Substance: SODIUM OXYBATE
     Indication: NARCOLEPSY
     Dosage: 2.25 G, BID
     Route: 048
     Dates: start: 200707, end: 200708
  9. XYREM [Suspect]
     Active Substance: SODIUM OXYBATE
     Indication: CATAPLEXY
     Dosage: DOSE ADJUSTMENT
     Route: 048
     Dates: start: 2007, end: 2007
  10. XYREM [Suspect]
     Active Substance: SODIUM OXYBATE
     Dosage: 4.5 G, BID
     Route: 048
     Dates: start: 200709, end: 2007
  11. DEXAMFETAMINE [Concomitant]
     Active Substance: DEXTROAMPHETAMINE
  12. CLONAZEPAM. [Concomitant]
     Active Substance: CLONAZEPAM
  13. PROPECIA [Concomitant]
     Active Substance: FINASTERIDE
  14. LAMICTAL [Concomitant]
     Active Substance: LAMOTRIGINE
  15. NORVASC [Concomitant]
     Active Substance: AMLODIPINE BESYLATE
  16. RITALIN [Concomitant]
     Active Substance: METHYLPHENIDATE HYDROCHLORIDE

REACTIONS (3)
  - Pre-existing condition improved [Unknown]
  - Therapeutic response unexpected [Unknown]
  - Weight decreased [Unknown]
